FAERS Safety Report 16004290 (Version 1)
Quarter: 2019Q1

REPORT INFORMATION
  Report Type: Spontaneous
  Country: MK (occurrence: MK)
  Receive Date: 20190226
  Receipt Date: 20190226
  Transmission Date: 20190418
  Serious: Yes (Other)
  Sender: FDA-Public Use
  Company Number: MK-HQ SPECIALTY-MK-2019INT000055

PATIENT

DRUGS (12)
  1. CARBAMAZEPINE. [Concomitant]
     Active Substance: CARBAMAZEPINE
     Indication: EPILEPSY
  2. LAMOTRIGINE. [Concomitant]
     Active Substance: LAMOTRIGINE
     Indication: CORTICAL DYSPLASIA
     Dosage: UNK
  3. LEVETIRACETAM. [Suspect]
     Active Substance: LEVETIRACETAM
     Indication: CORTICAL DYSPLASIA
     Dosage: 2000 MG, QD
     Route: 065
  4. LEVETIRACETAM. [Suspect]
     Active Substance: LEVETIRACETAM
     Indication: EPILEPSY
  5. LAMOTRIGINE. [Concomitant]
     Active Substance: LAMOTRIGINE
     Indication: EPILEPSY
  6. VALPROIC ACID. [Concomitant]
     Active Substance: VALPROIC ACID
     Indication: EPILEPSY
  7. TOPIRAMATE. [Concomitant]
     Active Substance: TOPIRAMATE
     Indication: CORTICAL DYSPLASIA
     Dosage: UNK
  8. CARBAMAZEPINE. [Concomitant]
     Active Substance: CARBAMAZEPINE
     Indication: CORTICAL DYSPLASIA
     Dosage: UNK
  9. TOPIRAMATE. [Concomitant]
     Active Substance: TOPIRAMATE
     Indication: EPILEPSY
  10. PREGABALIN. [Concomitant]
     Active Substance: PREGABALIN
     Indication: EPILEPSY
  11. PREGABALIN. [Concomitant]
     Active Substance: PREGABALIN
     Indication: CORTICAL DYSPLASIA
     Dosage: UNK
  12. VALPROIC ACID. [Concomitant]
     Active Substance: VALPROIC ACID
     Indication: CORTICAL DYSPLASIA
     Dosage: UNK

REACTIONS (5)
  - Myoclonic epilepsy [Recovering/Resolving]
  - Seizure [Recovering/Resolving]
  - Altered state of consciousness [Recovering/Resolving]
  - Tonic convulsion [Recovering/Resolving]
  - Change in seizure presentation [Recovering/Resolving]
